APPROVED DRUG PRODUCT: ACETAMINOPHEN
Active Ingredient: ACETAMINOPHEN
Strength: 650MG
Dosage Form/Route: TABLET, EXTENDED RELEASE;ORAL
Application: A090205 | Product #001
Applicant: SUN PHARMACEUTICAL INDUSTRIES LTD
Approved: Nov 18, 2009 | RLD: No | RS: No | Type: DISCN